FAERS Safety Report 12630940 (Version 2)
Quarter: 2016Q3

REPORT INFORMATION
  Report Type: Spontaneous
  Country: US (occurrence: US)
  Receive Date: 20160808
  Receipt Date: 20160808
  Transmission Date: 20161109
  Serious: No
  Sender: FDA-Public Use
  Company Number: US-BEH-2015051489

PATIENT
  Age: 37 Year
  Sex: Female
  Weight: 62.6 kg

DRUGS (9)
  1. ACETAMINOPHEN. [Concomitant]
     Active Substance: ACETAMINOPHEN
     Dosage: UD
     Route: 048
  2. LIDOCAINE/PRILOCAINE [Concomitant]
     Active Substance: LIDOCAINE\PRILOCAINE
     Dosage: 2.5% PRIOR
     Route: 061
  3. EPIPEN [Concomitant]
     Active Substance: EPINEPHRINE
     Indication: ANAPHYLACTIC REACTION
     Dosage: AUTOINJECTOR (UD)
  4. HIZENTRA [Suspect]
     Active Substance: HUMAN IMMUNOGLOBULIN G
     Dosage: 1 G 5 ML VIAL (START DATE: FEB-2015)
     Route: 058
  5. HIZENTRA [Suspect]
     Active Substance: HUMAN IMMUNOGLOBULIN G
     Indication: SELECTIVE IGM IMMUNODEFICIENCY
     Dosage: 2 GM 10 ML VIAL (START DATE: FEB-2015)
     Route: 058
  6. DIPHENHYDRAMINE. [Concomitant]
     Active Substance: DIPHENHYDRAMINE
     Indication: ANAPHYLACTIC REACTION
  7. HIZENTRA [Suspect]
     Active Substance: HUMAN IMMUNOGLOBULIN G
     Dosage: 10 GM 50 ML VIAL (START DATE: FEB-2015)
     Route: 058
  8. LIDOCAINE. [Concomitant]
     Active Substance: LIDOCAINE
     Dosage: 4% UD
  9. PRENATAL [Concomitant]
     Active Substance: VITAMINS
     Dosage: 19 29-1-25 MG TABLET
     Route: 048

REACTIONS (6)
  - Erythema [Recovered/Resolved]
  - Pain [Recovered/Resolved]
  - Swelling [Recovered/Resolved]
  - Malaise [Recovered/Resolved]
  - Inflammation [Recovered/Resolved]
  - Contusion [Not Recovered/Not Resolved]

NARRATIVE: CASE EVENT DATE: 201502
